FAERS Safety Report 5855756-8 (Version None)
Quarter: 2008Q3

REPORT INFORMATION
  Report Type: 
  Country: None (occurrence: None)
  Receive Date: 20080825
  Receipt Date: 20080811
  Transmission Date: 20090109
  Serious: Yes (Other)
  Sender: FDA-Public Use
  Company Number: US-JNJFOC-20080802905

PATIENT
  Age: 35 Year
  Sex: Male
  Weight: 78.93 kg

DRUGS (8)
  1. RISPERDAL [Suspect]
     Route: 048
  2. RISPERDAL [Suspect]
     Indication: ANXIETY
     Route: 048
  3. RISPERIDONE [Suspect]
     Indication: ANXIETY
     Route: 048
  4. CLONAZEPAM [Concomitant]
     Indication: ANXIETY
     Route: 048
  5. FLUVOXAMINE MALEATE [Concomitant]
     Indication: ANXIETY
     Route: 048
  6. FEXOFENADINE [Concomitant]
     Indication: ECZEMA
     Route: 048
  7. KENALOG [Concomitant]
     Indication: RASH
     Route: 030
  8. KENALOG [Concomitant]
     Indication: ERYTHEMA
     Route: 030

REACTIONS (11)
  - BLOOD PRESSURE INCREASED [None]
  - CHILLS [None]
  - DRUG INEFFECTIVE [None]
  - DRY SKIN [None]
  - ERYTHEMA [None]
  - HYPERHIDROSIS [None]
  - IMPAIRED WORK ABILITY [None]
  - PRURITUS [None]
  - RASH [None]
  - SKIN EXFOLIATION [None]
  - SKIN WARM [None]
